FAERS Safety Report 6073847-6 (Version None)
Quarter: 2009Q1

REPORT INFORMATION
  Report Type: 
  Country: None (occurrence: None)
  Receive Date: 20090211
  Receipt Date: 20090203
  Transmission Date: 20090719
  Serious: Yes (Hospitalization)
  Sender: FDA-Public Use
  Company Number: US-AMGEN-QUU330590

PATIENT
  Sex: Male
  Weight: 109 kg

DRUGS (11)
  1. NEULASTA [Suspect]
     Indication: CHEMOTHERAPY
     Route: 058
     Dates: start: 20081218, end: 20081218
  2. NEUPOGEN [Suspect]
     Indication: CHEMOTHERAPY
     Dates: start: 20081209, end: 20081211
  3. ETOPOSIDE [Concomitant]
  4. CISPLATIN [Concomitant]
  5. PERCOCET [Concomitant]
  6. RANITIDINE [Concomitant]
  7. OMEPRAZOLE [Concomitant]
  8. NEXIUM [Concomitant]
  9. LORAZEPAM [Concomitant]
  10. COMPAZINE [Concomitant]
  11. DOCUSATE [Concomitant]

REACTIONS (1)
  - ACUTE FEBRILE NEUTROPHILIC DERMATOSIS [None]
